FAERS Safety Report 7413312-4 (Version None)
Quarter: 2011Q2

REPORT INFORMATION
  Report Type: 
  Country: None (occurrence: None)
  Receive Date: 20110413
  Receipt Date: 20110331
  Transmission Date: 20111010
  Serious: Yes (Hospitalization, Other)
  Sender: FDA-Public Use
  Company Number: PHEH2007US05535

PATIENT
  Sex: Male

DRUGS (47)
  1. AREDIA [Suspect]
  2. ZOMETA [Suspect]
  3. LUPRON [Concomitant]
  4. CIPROFLOXACIN [Concomitant]
  5. LORAZEPAM [Concomitant]
  6. MEGACE [Concomitant]
  7. PERCOCET [Concomitant]
  8. PREDNISONE [Concomitant]
  9. IBUPROFEN [Concomitant]
  10. GABAPENTIN [Concomitant]
  11. DEXAMETHASONE [Concomitant]
  12. EFFEXOR [Concomitant]
  13. ZOCOR [Concomitant]
  14. FOSAMAX [Suspect]
  15. METFFORMIN HYDROCHLORIDE [Concomitant]
  16. KLOR-CON [Concomitant]
  17. FOLIC ACID [Concomitant]
     Dosage: 400 UG, QD
  18. PROCHLORPERAZINE TAB [Concomitant]
  19. TERAZOSIN [Concomitant]
     Dosage: 5 MG, TID
  20. ASPIRIN [Concomitant]
     Dosage: 81 MG, QD
  21. CARISOPRODOL [Concomitant]
  22. LEXAPRO [Concomitant]
  23. ADVIL LIQUI-GELS [Concomitant]
  24. LIPITOR [Concomitant]
  25. ARANESP [Concomitant]
  26. ASCORBIC ACID [Concomitant]
  27. POTASSIUM GLUCONATE TAB [Concomitant]
  28. NEULASTA [Concomitant]
  29. BACLOFEN [Concomitant]
  30. LUNESTA [Concomitant]
  31. LOTENSIN [Concomitant]
  32. NORCO [Concomitant]
  33. CASODEX [Concomitant]
  34. GLIPIZIDE [Concomitant]
  35. COENZYME A [Concomitant]
     Dosage: 150 MG, TID
  36. TAXOTERE [Concomitant]
  37. PROTONIX [Concomitant]
     Dosage: 40 MG, QD
  38. PRASTERONE [Concomitant]
  39. HYTRIN [Concomitant]
  40. OXYCONTIN [Concomitant]
  41. VICODIN [Concomitant]
  42. OXYCODONE [Concomitant]
     Dosage: 80 MG, TID
  43. HYDROCODONE [Concomitant]
  44. CINNAMON [Concomitant]
  45. MULTIVITAMIN ^LAPPE^ [Concomitant]
  46. SENNA [Concomitant]
  47. GINKGO BILOBA [Concomitant]

REACTIONS (95)
  - INJURY [None]
  - INFECTION [None]
  - VENOUS THROMBOSIS [None]
  - CONFUSIONAL STATE [None]
  - ANAEMIA [None]
  - INCONTINENCE [None]
  - DIVERTICULUM [None]
  - HAEMORRHOIDS [None]
  - GYNAECOMASTIA [None]
  - CHEST PAIN [None]
  - BLOOD FOLATE INCREASED [None]
  - HERPES ZOSTER [None]
  - SEPSIS [None]
  - NEUTROPENIA [None]
  - PROSTATE CANCER METASTATIC [None]
  - BONE PAIN [None]
  - MUSCULAR WEAKNESS [None]
  - LUMBAR RADICULOPATHY [None]
  - CEREBROVASCULAR ACCIDENT [None]
  - GASTROENTERITIS RADIATION [None]
  - POLYP [None]
  - NAUSEA [None]
  - BRAIN HERNIATION [None]
  - CONSTIPATION [None]
  - MUCOSAL INFLAMMATION [None]
  - DECREASED APPETITE [None]
  - URINARY RETENTION [None]
  - HYPOPHAGIA [None]
  - PAIN [None]
  - ALTERED STATE OF CONSCIOUSNESS [None]
  - CARDIAC FAILURE CONGESTIVE [None]
  - OEDEMA [None]
  - SYNCOPE [None]
  - HEADACHE [None]
  - MUSCLE SPASMS [None]
  - CENTRAL NERVOUS SYSTEM LESION [None]
  - ANGINA UNSTABLE [None]
  - BLADDER SPASM [None]
  - DYSPNOEA [None]
  - PROSTATIC ACID PHOSPHATASE INCREASED [None]
  - OSTEONECROSIS OF JAW [None]
  - LOOSE TOOTH [None]
  - BONE LESION [None]
  - GENITAL HERPES [None]
  - HYPERHIDROSIS [None]
  - LETHARGY [None]
  - PARAESTHESIA [None]
  - PERIORBITAL OEDEMA [None]
  - TONGUE INJURY [None]
  - DIARRHOEA [None]
  - HOT FLUSH [None]
  - BACK PAIN [None]
  - PROSTATIC SPECIFIC ANTIGEN INCREASED [None]
  - SPINAL OSTEOARTHRITIS [None]
  - ANXIETY [None]
  - VITAMIN B12 INCREASED [None]
  - HYPOTENSION [None]
  - RESPIRATORY DISORDER [None]
  - PERINEURIAL CYST [None]
  - LEUKOPENIA [None]
  - DEHYDRATION [None]
  - FALL [None]
  - DIPLOPIA [None]
  - BLOOD CHROMOGRANIN A INCREASED [None]
  - BONE DISORDER [None]
  - BLOOD TESTOSTERONE DECREASED [None]
  - BLINDNESS UNILATERAL [None]
  - CYSTITIS [None]
  - CUSHING'S SYNDROME [None]
  - METASTASES TO CENTRAL NERVOUS SYSTEM [None]
  - BRAIN MASS [None]
  - URINARY INCONTINENCE [None]
  - FATIGUE [None]
  - NEUROPATHY PERIPHERAL [None]
  - MUSCULOSKELETAL DISCOMFORT [None]
  - HYPOGEUSIA [None]
  - PANCYTOPENIA [None]
  - CANDIDIASIS [None]
  - BALANCE DISORDER [None]
  - METASTASES TO BONE [None]
  - ABDOMINAL PAIN [None]
  - OTITIS EXTERNA [None]
  - CONJUNCTIVAL HAEMORRHAGE [None]
  - TRANSIENT ISCHAEMIC ATTACK [None]
  - UMBILICAL HERNIA [None]
  - EXOPHTHALMOS [None]
  - ORBITAL OEDEMA [None]
  - RASH [None]
  - MUSCULOSKELETAL PAIN [None]
  - OBSTRUCTIVE UROPATHY [None]
  - HAEMATURIA [None]
  - PYREXIA [None]
  - DEPRESSION [None]
  - CARDIAC DISORDER [None]
  - PAIN IN EXTREMITY [None]
